FAERS Safety Report 4377089-1 (Version None)
Quarter: 2004Q2

REPORT INFORMATION
  Report Type: 
  Country: None (occurrence: None)
  Receive Date: 20040608
  Receipt Date: 20040525
  Transmission Date: 20050107
  Serious: Yes (Hospitalization, Other)
  Sender: FDA-Public Use
  Company Number: JP-JNJFOC-20040301138

PATIENT
  Age: 68 Year
  Sex: Female
  Weight: 45 kg

DRUGS (10)
  1. REMICADE [Suspect]
     Indication: RHEUMATOID ARTHRITIS
     Dosage: SEE IMAGE
     Route: 041
     Dates: start: 20030730, end: 20030730
  2. REMICADE [Suspect]
     Indication: RHEUMATOID ARTHRITIS
     Dosage: SEE IMAGE
     Route: 041
     Dates: start: 20031014, end: 20031014
  3. REMICADE [Suspect]
     Indication: RHEUMATOID ARTHRITIS
     Dosage: SEE IMAGE
     Route: 041
     Dates: start: 20031111, end: 20031111
  4. REMICADE [Suspect]
     Indication: RHEUMATOID ARTHRITIS
     Dosage: SEE IMAGE
     Route: 041
     Dates: start: 20040106, end: 20040106
  5. REMICADE [Suspect]
     Indication: RHEUMATOID ARTHRITIS
     Dosage: SEE IMAGE
     Route: 041
     Dates: start: 20040302, end: 20040302
  6. PREDNISOLONE [Suspect]
     Indication: RHEUMATOID ARTHRITIS
     Dosage: 5 MG, IN 1 DAY, ORAL
     Route: 048
  7. RHEUMATREX [Concomitant]
  8. ISONIAZID [Concomitant]
  9. LOXONIN (LOXOPROFEN SODIUM) [Concomitant]
     Route: 048
  10. SELBEX (TEPRENONE) [Concomitant]
     Route: 048

REACTIONS (3)
  - BACK PAIN [None]
  - DRUG INTERACTION [None]
  - SPINAL FRACTURE [None]
